FAERS Safety Report 7908608-3 (Version None)
Quarter: 2011Q4

REPORT INFORMATION
  Report Type: 
  Country: None (occurrence: None)
  Receive Date: 20111111
  Receipt Date: 20111107
  Transmission Date: 20120403
  Serious: Yes (Life-Threatening, Hospitalization, Congenital Anomaly, Other)
  Sender: FDA-Public Use
  Company Number: FR-PFIZER INC-FR-WYE-G02035108

PATIENT
  Sex: Female

DRUGS (9)
  1. ATARAX [Suspect]
     Dosage: 100 MG STRENGTH; FREQUENCY UNSPECIFIED
     Route: 064
     Dates: start: 20070201
  2. LERCANIDIPINE [Suspect]
     Dosage: UNK
     Route: 064
     Dates: end: 20070220
  3. EFFEXOR [Suspect]
     Dosage: 50 MG STRENGTH; FREQUENCY UNSPECIFIED
     Route: 064
  4. MEPRONIZINE [Suspect]
     Dosage: UNK
     Route: 064
     Dates: start: 20050301
  5. TRANDATE [Concomitant]
     Route: 064
  6. NICARDIPINE HCL [Concomitant]
     Route: 064
  7. ALDOMET [Suspect]
     Dosage: 750 MG TOTAL DAILY
     Route: 064
     Dates: start: 20070220, end: 20070428
  8. AVANDIA [Suspect]
     Dosage: UNK
     Route: 064
     Dates: end: 20070216
  9. INSULIN [Concomitant]
     Dosage: UNK
     Route: 064
     Dates: start: 20070216

REACTIONS (16)
  - PREMATURE BABY [None]
  - FOETAL GROWTH RESTRICTION [None]
  - PATENT DUCTUS ARTERIOSUS [None]
  - OMPHALITIS [None]
  - FOETAL ARRHYTHMIA [None]
  - NEONATAL RESPIRATORY DISTRESS SYNDROME [None]
  - PULMONARY ARTERIAL HYPERTENSION [None]
  - BODY HEIGHT BELOW NORMAL [None]
  - OLIGOHYDRAMNIOS [None]
  - MATERNAL EXPOSURE TIMING UNSPECIFIED [None]
  - HYPOTONIA NEONATAL [None]
  - UMBILICAL CORD ABNORMALITY [None]
  - CONJUNCTIVITIS [None]
  - BRONCHOPULMONARY DYSPLASIA [None]
  - STAPHYLOCOCCAL SEPSIS [None]
  - JAUNDICE NEONATAL [None]
